FAERS Safety Report 4952706-3 (Version None)
Quarter: 2006Q1

REPORT INFORMATION
  Report Type: 
  Country: None (occurrence: None)
  Receive Date: 20060324
  Receipt Date: 20060313
  Transmission Date: 20060701
  Serious: Yes (Hospitalization)
  Sender: FDA-Public Use
  Company Number: US-JNJFOC-20060201083

PATIENT
  Sex: Male
  Weight: 97.52 kg

DRUGS (8)
  1. REMICADE [Suspect]
     Indication: CROHN'S DISEASE
     Dosage: DOSE ^FIVE VIALS^
     Route: 042
     Dates: start: 20051206
  2. CODEINE [Concomitant]
  3. ANTIBIOTICS [Concomitant]
  4. INHALER [Concomitant]
  5. NEBULIZER TREATMENT [Concomitant]
  6. DECONGESTANTS [Concomitant]
  7. BENADRYL [Concomitant]
     Indication: PREMEDICATION
  8. SOLU-MEDROL [Concomitant]
     Indication: PREMEDICATION

REACTIONS (8)
  - APHONIA [None]
  - ARTHRALGIA [None]
  - COUGH [None]
  - DYSPNOEA [None]
  - FATIGUE [None]
  - LOSS OF CONSCIOUSNESS [None]
  - RASH [None]
  - UPPER RESPIRATORY TRACT INFECTION [None]
